FAERS Safety Report 9454410 (Version 2)
Quarter: 2013Q4

REPORT INFORMATION
  Report Type: Report from Study
  Country: US (occurrence: US)
  Receive Date: 20130812
  Receipt Date: 20131004
  Transmission Date: 20140711
  Serious: Yes (Hospitalization, Other)
  Sender: FDA-Public Use
  Company Number: US-TEVA-425135USA

PATIENT
  Age: 35 Year
  Sex: Male

DRUGS (8)
  1. CLOZAPINE [Suspect]
     Indication: SCHIZOPHRENIA
     Route: 048
  2. KLONOPIN [Concomitant]
  3. HYDROCODONE [Concomitant]
  4. OXYCODONE [Concomitant]
  5. PROZAC [Concomitant]
  6. FIORICET [Concomitant]
  7. LYRICA [Concomitant]
  8. REMERON [Concomitant]

REACTIONS (5)
  - Encephalopathy [Unknown]
  - Convulsion [Unknown]
  - Urinary tract infection [Unknown]
  - Mental status changes [Unknown]
  - Pneumonia [Recovered/Resolved with Sequelae]
